FAERS Safety Report 17468304 (Version 1)
Quarter: 2020Q1

REPORT INFORMATION
  Report Type: Spontaneous
  Country: US (occurrence: US)
  Receive Date: 20200227
  Receipt Date: 20200227
  Transmission Date: 20200409
  Serious: No
  Sender: FDA-Public Use
  Company Number: US-BAUSCH-BL-2020-003321

PATIENT
  Sex: Male

DRUGS (2)
  1. LUMIFY [Suspect]
     Active Substance: BRIMONIDINE TARTRATE
     Dosage: ROUTE: INTRAOCULAR, ?LATEST BOTTLE
     Route: 047
  2. LUMIFY [Suspect]
     Active Substance: BRIMONIDINE TARTRATE
     Indication: PRODUCT USED FOR UNKNOWN INDICATION
     Dosage: ROUTE: INTRAOCULAR, ?STARTED: FOR YEARS
     Route: 047

REACTIONS (4)
  - Product quality issue [Unknown]
  - Eye irritation [Recovered/Resolved]
  - Counterfeit product administered [Unknown]
  - Therapeutic product effect incomplete [Unknown]
